FAERS Safety Report 8687677 (Version 2)
Quarter: 2012Q4

REPORT INFORMATION
  Report Type: 
  Country: US (occurrence: US)
  Receive Date: 20120727
  Receipt Date: 20120912
  Transmission Date: 20130627
  Serious: Yes (Hospitalization)
  Sender: FDA-Public Use
  Company Number: PHEH2012US014657

PATIENT
  Age: 41 None
  Sex: Female
  Weight: 117.3 kg

DRUGS (9)
  1. GILENYA [Suspect]
     Indication: MULTIPLE SCLEROSIS
     Dosage: 0.5 mg, QD
     Route: 048
     Dates: start: 201112
  2. ZOLOFT [Concomitant]
     Dosage: 100 mg, QD
     Route: 048
  3. RANITIDINE [Concomitant]
     Dosage: 75 mg, QD
     Route: 048
  4. DEPO-PROVERA [Concomitant]
     Dosage: UNK
  5. LORATADINE [Concomitant]
     Dosage: 10 mg, QD
     Route: 048
  6. VITAMIN D3 [Concomitant]
     Dosage: UNK
  7. EXCEDRIN [Concomitant]
     Indication: HEADACHE
  8. NORMAL SALINE [Concomitant]
     Dosage: 1000 ml, UNK
     Route: 042
  9. ZOFRAN [Concomitant]
     Dosage: 4 mg to 8 mg, TID
     Route: 042

REACTIONS (22)
  - Vomiting [Recovered/Resolved]
  - Pyrexia [Recovered/Resolved]
  - Nausea [Unknown]
  - Influenza like illness [Unknown]
  - Headache [Recovered/Resolved]
  - Oropharyngeal pain [Unknown]
  - Diarrhoea [Recovered/Resolved]
  - Pharyngeal erythema [Unknown]
  - Cognitive disorder [Unknown]
  - Confusional state [Unknown]
  - Mucosal dryness [Unknown]
  - Sleep apnoea syndrome [Unknown]
  - Snoring [Unknown]
  - Granulocyte count decreased [Unknown]
  - Lymphocyte percentage decreased [Unknown]
  - Paraesthesia [Unknown]
  - Dizziness [Unknown]
  - White blood cell count decreased [Unknown]
  - Muscular weakness [None]
  - Depressed mood [None]
  - Musculoskeletal stiffness [None]
  - No therapeutic response [None]
